FAERS Safety Report 21891775 (Version 1)
Quarter: 2023Q1

REPORT INFORMATION
  Report Type: Spontaneous
  Country: US (occurrence: US)
  Receive Date: 20230120
  Receipt Date: 20230120
  Transmission Date: 20230417
  Serious: No
  Sender: FDA-Public Use
  Company Number: US-BRISTOL-MYERS SQUIBB COMPANY-2023-009241

PATIENT
  Age: 80 Year
  Sex: Male

DRUGS (9)
  1. POMALYST [Suspect]
     Active Substance: POMALIDOMIDE
     Indication: Plasma cell myeloma
     Route: 048
     Dates: start: 20220311
  2. DEXAMETHASONE [Concomitant]
     Active Substance: DEXAMETHASONE
     Indication: Product used for unknown indication
  3. GABAPENTIN [Concomitant]
     Active Substance: GABAPENTIN
     Indication: Product used for unknown indication
     Dosage: GABAPENTIN CAP 100MG
  4. LIPITOR [Concomitant]
     Active Substance: ATORVASTATIN CALCIUM
     Indication: Product used for unknown indication
     Dosage: LIPITOR TAB 20MG
  5. NORCO [Concomitant]
     Active Substance: ACETAMINOPHEN\HYDROCODONE BITARTRATE
     Indication: Product used for unknown indication
     Dosage: NORCO TAB 10-325MG
  6. OMEPRAZOLE [Concomitant]
     Active Substance: OMEPRAZOLE
     Indication: Product used for unknown indication
     Dosage: OMEPRAZOLE CAP 20MG
  7. OYSTER SHELL [Concomitant]
     Active Substance: OSTREA EDULIS SHELL
     Indication: Product used for unknown indication
     Dosage: OYSTER SHELL TAB 500MG
  8. PROCHLORPERAZINE [Concomitant]
     Active Substance: PROCHLORPERAZINE
     Indication: Product used for unknown indication
     Dosage: PROCHLORPER TAB 10MG
  9. SENNA-S [DOCUSATE SODIUM;SENNOSIDE A+B] [Concomitant]
     Indication: Product used for unknown indication
     Dosage: SENNA-S TAB 8.6-50MG

REACTIONS (1)
  - Bronchitis [Unknown]
